FAERS Safety Report 5442688-2 (Version None)
Quarter: 2007Q3

REPORT INFORMATION
  Report Type: 
  Country: None (occurrence: None)
  Receive Date: 20070904
  Receipt Date: 20070904
  Transmission Date: 20080115
  Serious: Yes (Other)
  Sender: FDA-Public Use
  Company Number: US-ROXANE LABORATORIES, INC-2007-DE-05147GD

PATIENT
  Age: 68 Year
  Sex: Male

DRUGS (3)
  1. ASPIRIN [Suspect]
     Indication: INTERMITTENT CLAUDICATION
  2. CILOSTAZOL [Suspect]
     Indication: INTERMITTENT CLAUDICATION
  3. ATORVASTATIN [Suspect]
     Indication: INTERMITTENT CLAUDICATION

REACTIONS (1)
  - DRUG INEFFECTIVE [None]
